FAERS Safety Report 9912619 (Version 1)
Quarter: 2014Q1

REPORT INFORMATION
  Report Type: Spontaneous
  Country: AT (occurrence: None)
  Receive Date: 20140212
  Receipt Date: 20140212
  Transmission Date: 20141002
  Serious: Yes (Hospitalization)
  Sender: FDA-Public Use
  Company Number: FK201400374

PATIENT
  Age: 81 Year
  Sex: Male

DRUGS (2)
  1. GRANISETRON [Suspect]
     Indication: ANTIEMETIC SUPPORTIVE CARE
  2. 5-AZACYTIDINE [Suspect]
     Indication: MYELODYSPLASTIC SYNDROME
     Route: 058

REACTIONS (1)
  - Colitis ischaemic [None]
